FAERS Safety Report 10777433 (Version 1)
Quarter: 2015Q1

REPORT INFORMATION
  Report Type: Spontaneous
  Country: US (occurrence: None)
  Receive Date: 20150206
  Receipt Date: 20150206
  Transmission Date: 20150721
  Serious: No
  Sender: FDA-Public Use
  Company Number: None

PATIENT
  Age: 67 Year
  Sex: Female
  Weight: 105.24 kg

DRUGS (11)
  1. METFORMIONE HCL 1000 MG [Concomitant]
  2. CINNAMON. [Concomitant]
     Active Substance: CINNAMON
  3. MULTIBETIC-MULTI-VITAMIN DIABETES [Concomitant]
  4. FENOFIBRATE 134 MG [Concomitant]
  5. AMLODIPINE 10 320 MG [Concomitant]
  6. LOW DOSE BAYER ASPIRIN [Concomitant]
     Active Substance: ASPIRIN
  7. CITALOPRAM HBR 20 MG [Concomitant]
  8. CARVEDILOL 25 MG [Concomitant]
  9. CHLORTHLIDONE 25 MG [Concomitant]
  10. MYRBETRIQ [Suspect]
     Active Substance: MIRABEGRON
     Indication: INCONTINENCE
     Route: 048
     Dates: start: 20150111, end: 20150117
  11. PRAVISTATINSODIUM 60 MG [Concomitant]

REACTIONS (2)
  - Cold sweat [None]
  - Feeling abnormal [None]

NARRATIVE: CASE EVENT DATE: 20150118
